FAERS Safety Report 7006188-0 (Version None)
Quarter: 2010Q3

REPORT INFORMATION
  Report Type: 
  Country: None (occurrence: None)
  Receive Date: 20100921
  Receipt Date: 20100907
  Transmission Date: 20110219
  Serious: Yes (Other)
  Sender: FDA-Public Use
  Company Number: DE-MYLANLABS-2010S1016430

PATIENT
  Age: 59 Year
  Sex: Male

DRUGS (1)
  1. AZATHIOPRINE [Suspect]
     Indication: ALLERGIC GRANULOMATOUS ANGIITIS
     Dosage: TAPERED TO 200 MG/DAY
     Route: 065

REACTIONS (1)
  - HYPERSENSITIVITY [None]
